FAERS Safety Report 8059393-9 (Version None)
Quarter: 2012Q1

REPORT INFORMATION
  Report Type: 
  Country: None (occurrence: None)
  Receive Date: 20120120
  Receipt Date: 20120117
  Transmission Date: 20120608
  Serious: Yes (Hospitalization)
  Sender: FDA-Public Use
  Company Number: CN-SANOFI-AVENTIS-2012SA003400

PATIENT
  Age: 15 Year
  Sex: Male

DRUGS (8)
  1. PREDNISONE [Suspect]
     Route: 065
     Dates: start: 20090601
  2. PREDNISONE [Suspect]
     Route: 065
     Dates: start: 20080701
  3. PROTON PUMP INHIBITORS [Suspect]
     Route: 065
     Dates: start: 20080701
  4. CALCIUM [Concomitant]
     Dates: start: 20080701
  5. VITAMIN D [Concomitant]
     Dates: start: 20080701
  6. METHOTREXATE [Suspect]
     Route: 065
     Dates: start: 20080701
  7. FOLIC ACID [Concomitant]
     Dates: start: 20080701
  8. HYDROXYCHLOROQUINE SULFATE [Suspect]
     Route: 065
     Dates: start: 20080701

REACTIONS (6)
  - DIARRHOEA [None]
  - VOMITING [None]
  - NAUSEA [None]
  - ABDOMINAL PAIN [None]
  - PYREXIA [None]
  - BEZOAR [None]
